FAERS Safety Report 6827786-0 (Version None)
Quarter: 2010Q3

REPORT INFORMATION
  Report Type: 
  Country: None (occurrence: None)
  Receive Date: 20100709
  Receipt Date: 20070129
  Transmission Date: 20110219
  Serious: No
  Sender: FDA-Public Use
  Company Number: US-PFIZER INC-2007008850

PATIENT
  Sex: Female

DRUGS (1)
  1. CHANTIX [Suspect]

REACTIONS (6)
  - CONSTIPATION [None]
  - DYSURIA [None]
  - FLATULENCE [None]
  - HEADACHE [None]
  - NAUSEA [None]
  - RASH [None]
